FAERS Safety Report 6375150-3 (Version None)
Quarter: 2009Q3

REPORT INFORMATION
  Report Type: 
  Country: None (occurrence: None)
  Receive Date: 20090924
  Receipt Date: 20090922
  Transmission Date: 20100115
  Serious: Yes (Death)
  Sender: FDA-Public Use
  Company Number: US-B.I. PHARMACEUTICALS,INC./RIDGEFIELD-2009-BP-11154BP

PATIENT
  Sex: Male

DRUGS (1)
  1. COMBIVENT [Suspect]

REACTIONS (2)
  - DEATH [None]
  - INCORRECT DOSE ADMINISTERED [None]
